FAERS Safety Report 7267247-0 (Version None)
Quarter: 2011Q1

REPORT INFORMATION
  Report Type: 
  Country: None (occurrence: None)
  Receive Date: 20110201
  Receipt Date: 20101130
  Transmission Date: 20110831
  Serious: No
  Sender: FDA-Public Use
  Company Number: A0890896A

PATIENT
  Age: 31 Year
  Sex: Female

DRUGS (1)
  1. VELTIN [Suspect]
     Dosage: 1APP AT NIGHT
     Route: 061
     Dates: start: 20101019, end: 20101026

REACTIONS (3)
  - BURNING SENSATION [None]
  - LOCAL SWELLING [None]
  - URTICARIA [None]
